FAERS Safety Report 26044898 (Version 1)
Quarter: 2025Q4

REPORT INFORMATION
  Report Type: Spontaneous
  Country: CN (occurrence: CN)
  Receive Date: 20251114
  Receipt Date: 20251114
  Transmission Date: 20260117
  Serious: Yes (Hospitalization, Other)
  Sender: AMGEN
  Company Number: CN-AMGEN-CHNSP2025222567

PATIENT
  Age: 56 Year
  Sex: Male
  Weight: 63 kg

DRUGS (3)
  1. KYPROLIS [Suspect]
     Active Substance: CARFILZOMIB
     Indication: Plasma cell myeloma
     Dosage: 46 MILLIGRAM, DAYS 1-2, 8-9, 15-16,27 MG/M2 (CALCULATED DOSE 47.25MG, ACTUAL 50MG),
     Route: 040
     Dates: start: 20251029, end: 20251029
  2. DARATUMUMAB [Suspect]
     Active Substance: DARATUMUMAB
     Indication: Plasma cell myeloma
     Dosage: 1800 MILLIGRAM, ONCE WEEKLY FROM 1-8, ONCE Q2W FROM WEEKS 9-24, AND THEREAFTER QMO
     Route: 058
     Dates: start: 20251029, end: 20251029
  3. DEXAMETHASONE [Concomitant]
     Active Substance: DEXAMETHASONE
     Indication: Plasma cell myeloma
     Dosage: 20 MILLIGRAM,  DAYS 1-2, 8-9, 15-16, AND 22-23
     Route: 040
     Dates: start: 20251029

REACTIONS (6)
  - Myelosuppression [Recovering/Resolving]
  - Neutropenia [Recovering/Resolving]
  - Anaemia [Recovering/Resolving]
  - Platelet count decreased [Recovering/Resolving]
  - Pyrexia [Recovering/Resolving]
  - White blood cell count decreased [Recovering/Resolving]

NARRATIVE: CASE EVENT DATE: 20251031
